FAERS Safety Report 5408295-2 (Version None)
Quarter: 2007Q3

REPORT INFORMATION
  Report Type: 
  Country: None (occurrence: None)
  Receive Date: 20070806
  Receipt Date: 20070806
  Transmission Date: 20080115
  Serious: Yes (Hospitalization)
  Sender: FDA-Public Use
  Company Number: None

PATIENT
  Age: 85 Year
  Sex: Male

DRUGS (2)
  1. PREDNISONE [Suspect]
     Indication: CHRONIC OBSTRUCTIVE PULMONARY DISEASE
     Dosage: 20MG EVERY DAY PO
     Route: 048
     Dates: start: 20070325
  2. PREDNISONE [Suspect]
     Indication: SINUSITIS
     Dosage: 20MG EVERY DAY PO
     Route: 048
     Dates: start: 20070325

REACTIONS (3)
  - DIZZINESS [None]
  - HYPERGLYCAEMIA [None]
  - POLYURIA [None]
